FAERS Safety Report 12219357 (Version 1)
Quarter: 2016Q1

REPORT INFORMATION
  Report Type: Spontaneous
  Country: GB (occurrence: GB)
  Receive Date: 20160329
  Receipt Date: 20160329
  Transmission Date: 20160526
  Serious: Yes (Other)
  Sender: FDA-Public Use
  Company Number: GB-BAXALTA-2016BLT001774

PATIENT
  Sex: Female

DRUGS (2)
  1. SUBCUVIA [Suspect]
     Active Substance: HUMAN IMMUNOGLOBULIN G
     Indication: PRODUCT USED FOR UNKNOWN INDICATION
     Dosage: 1.6 G, 1X A WEEK
     Route: 058
     Dates: start: 20061221
  2. SUBCUVIA [Suspect]
     Active Substance: HUMAN IMMUNOGLOBULIN G
     Dosage: 8 G, 1X A WEEK
     Route: 058
     Dates: start: 20061221

REACTIONS (3)
  - Pneumonia [Unknown]
  - Drug dose omission [Unknown]
  - Lower respiratory tract infection [Unknown]
